FAERS Safety Report 21422624 (Version 2)
Quarter: 2022Q4

REPORT INFORMATION
  Report Type: Spontaneous
  Country: FR (occurrence: None)
  Receive Date: 20221007
  Receipt Date: 20221108
  Transmission Date: 20230113
  Serious: Yes (Other)
  Sender: FDA-Public Use
  Company Number: 2022A337161

PATIENT
  Age: 849 Month
  Sex: Male

DRUGS (19)
  1. DAPAGLIFLOZIN [Suspect]
     Active Substance: DAPAGLIFLOZIN
     Indication: Type 2 diabetes mellitus
     Dosage: IN THE MORNING
     Route: 048
     Dates: start: 20220120, end: 20220923
  2. METFORMIN [Concomitant]
     Active Substance: METFORMIN HYDROCHLORIDE
  3. REPAGLIMIDE [Concomitant]
  4. ATORVASTATIN [Concomitant]
     Active Substance: ATORVASTATIN
  5. BISOPROLOL FUMARATE [Concomitant]
     Active Substance: BISOPROLOL FUMARATE
  6. ASPIRIN [Concomitant]
     Active Substance: ASPIRIN
  7. HYDROCHLOROTHIAZIDE\IRBESARTAN [Concomitant]
     Active Substance: HYDROCHLOROTHIAZIDE\IRBESARTAN
     Dosage: 150MG/12.5 MG
  8. FENOFIBRATE [Concomitant]
     Active Substance: FENOFIBRATE
  9. TRULICITY [Concomitant]
     Active Substance: DULAGLUTIDE
     Indication: Diabetes mellitus
     Dosage: 0.75
  10. CHOLECALCIFEROL [Concomitant]
     Active Substance: CHOLECALCIFEROL
  11. LANSOPRAZOLE [Concomitant]
     Active Substance: LANSOPRAZOLE
  12. HERBALS\SAW PALMETTO [Concomitant]
     Active Substance: HERBALS\SAW PALMETTO
  13. ZOVIRAX [Concomitant]
     Active Substance: ACYCLOVIR
  14. EMLA [Concomitant]
     Active Substance: LIDOCAINE\PRILOCAINE
  15. DEXERYL [Concomitant]
  16. TITANOREINE [Concomitant]
     Active Substance: CARRAGEENAN\TITANIUM\ZINC
  17. DOLIPRANE [Concomitant]
     Active Substance: ACETAMINOPHEN
  18. TAHOR [Concomitant]
     Active Substance: ATORVASTATIN CALCIUM
  19. METEOSPASMYL [Concomitant]

REACTIONS (3)
  - Phimosis [Recovering/Resolving]
  - Erectile dysfunction [Not Recovered/Not Resolved]
  - Injury [Not Recovered/Not Resolved]

NARRATIVE: CASE EVENT DATE: 20220701
